FAERS Safety Report 12677517 (Version 6)
Quarter: 2025Q4

REPORT INFORMATION
  Report Type: Spontaneous
  Country: JP (occurrence: JP)
  Receive Date: 20160823
  Receipt Date: 20251022
  Transmission Date: 20260119
  Serious: Yes (Other)
  Sender: PFIZER
  Company Number: JP-PFIZER INC-2016391357

PATIENT
  Age: 7 Decade
  Sex: Female
  Weight: 41.5 kg

DRUGS (20)
  1. METHYLPREDNISOLONE SODIUM SUCCINATE [Suspect]
     Active Substance: METHYLPREDNISOLONE SODIUM SUCCINATE
     Indication: Pemphigoid
     Dosage: 1 G, DAILY, CYCLIC FOR 3 DAYS
     Route: 042
     Dates: start: 201106, end: 201106
  2. METHYLPREDNISOLONE SODIUM SUCCINATE [Suspect]
     Active Substance: METHYLPREDNISOLONE SODIUM SUCCINATE
     Dosage: UNK
  3. METHYLPREDNISOLONE SODIUM SUCCINATE [Suspect]
     Active Substance: METHYLPREDNISOLONE SODIUM SUCCINATE
     Dosage: 24 MG, DAILY
     Route: 042
     Dates: start: 2012, end: 2012
  4. METHYLPREDNISOLONE SODIUM SUCCINATE [Suspect]
     Active Substance: METHYLPREDNISOLONE SODIUM SUCCINATE
     Dosage: 20 MG, DAILY
     Route: 042
     Dates: start: 2012, end: 2012
  5. METHYLPREDNISOLONE SODIUM SUCCINATE [Suspect]
     Active Substance: METHYLPREDNISOLONE SODIUM SUCCINATE
     Dosage: 16 MG, DAILY
     Route: 042
     Dates: start: 2012
  6. PREDNISOLONE [Suspect]
     Active Substance: PREDNISOLONE
     Indication: Pemphigus
     Dosage: 60 MG, DAILY  (12 DAYS)
     Route: 048
     Dates: start: 201106, end: 2011
  7. PREDNISOLONE [Suspect]
     Active Substance: PREDNISOLONE
     Dosage: 50 MG, DAILY (REDUCED)
     Route: 048
     Dates: start: 2011, end: 2011
  8. BETAMETHASONE [Suspect]
     Active Substance: BETAMETHASONE
     Indication: Pemphigus
     Dosage: 5 MG, DAILY
     Dates: start: 2011, end: 2011
  9. BETAMETHASONE [Suspect]
     Active Substance: BETAMETHASONE
     Dosage: 4.5 MG, DAILY( DOSE WAS REDUCED)
     Dates: start: 2011, end: 2011
  10. BETAMETHASONE [Suspect]
     Active Substance: BETAMETHASONE
     Dosage: 3.5 MG, DAILY( DOSE WAS REDUCED)
     Dates: start: 2011, end: 2011
  11. BETAMETHASONE [Suspect]
     Active Substance: BETAMETHASONE
     Dosage: 3 MG, DAILY( DOSE WAS REDUCED)
     Dates: start: 2011, end: 2011
  12. BETAMETHASONE [Suspect]
     Active Substance: BETAMETHASONE
     Dosage: 1.75 MG, DAILY( DOSE WAS REDUCED)
     Dates: start: 201201, end: 2012
  13. BETAMETHASONE [Suspect]
     Active Substance: BETAMETHASONE
     Dosage: 1.5 MG, DAILY ( DOSE WAS REDUCED)
     Dates: start: 2012
  14. KENKETU GLOVENIN-I [Concomitant]
     Active Substance: HUMAN IMMUNOGLOBULIN G
     Dosage: 400 MG/KG, DAILY FOR 5 DAYS
  15. CYCLOSPORINE [Concomitant]
     Active Substance: CYCLOSPORINE
     Indication: Pemphigus
     Dosage: 120 MG, DAILY
     Dates: start: 2011, end: 2012
  16. CYCLOSPORINE [Concomitant]
     Active Substance: CYCLOSPORINE
     Dosage: 100 MG, DAILY
     Dates: start: 2012
  17. VENOGLOBULIN IH [Concomitant]
     Active Substance: HUMAN IMMUNOGLOBULIN G
     Indication: Pemphigus
     Dosage: 400 MG/KG, DAILY FOR 5 DAYS
     Dates: start: 2011, end: 2012
  18. VENOGLOBULIN IH [Concomitant]
     Active Substance: HUMAN IMMUNOGLOBULIN G
     Dosage: SECOND COURSE; ONE MONTH LATER
     Dates: start: 2011, end: 2012
  19. VENOGLOBULIN IH [Concomitant]
     Active Substance: HUMAN IMMUNOGLOBULIN G
     Dosage: THIRD COURSE
     Dates: start: 2011, end: 2012
  20. VENOGLOBULIN IH [Concomitant]
     Active Substance: HUMAN IMMUNOGLOBULIN G
     Dosage: FOURTH COURSE
     Dates: start: 2011, end: 2012

REACTIONS (5)
  - Steroid diabetes [Unknown]
  - Pancreatic neoplasm [Unknown]
  - Cataract [Unknown]
  - Myopathy [Unknown]
  - Off label use [Unknown]

NARRATIVE: CASE EVENT DATE: 20110101
